FAERS Safety Report 11179682 (Version 1)
Quarter: 2015Q2

REPORT INFORMATION
  Report Type: Spontaneous
  Country: US (occurrence: None)
  Receive Date: 20150609
  Receipt Date: 20150609
  Transmission Date: 20150821
  Serious: Yes (Other)
  Sender: FDA-Public Use
  Company Number: None

PATIENT
  Age: 36 Year
  Sex: Female

DRUGS (5)
  1. LISINOPRIL. [Concomitant]
     Active Substance: LISINOPRIL
  2. TOPAMAX [Concomitant]
     Active Substance: TOPIRAMATE
  3. LITHIUM CARBONATE. [Suspect]
     Active Substance: LITHIUM CARBONATE
  4. LAMICTAL [Concomitant]
     Active Substance: LAMOTRIGINE
  5. WELLBUTRIN [Concomitant]
     Active Substance: BUPROPION HYDROCHLORIDE

REACTIONS (4)
  - Fatigue [None]
  - Dizziness [None]
  - Nausea [None]
  - Myalgia [None]

NARRATIVE: CASE EVENT DATE: 20150601
